FAERS Safety Report 10228583 (Version 3)
Quarter: 2015Q1

REPORT INFORMATION
  Report Type: Spontaneous
  Country: US (occurrence: US)
  Receive Date: 20140610
  Receipt Date: 20150326
  Transmission Date: 20150720
  Serious: Yes (Hospitalization)
  Sender: FDA-Public Use
  Company Number: US-BAYER-2014-085686

PATIENT
  Age: 27 Year
  Sex: Female
  Weight: 102.4 kg

DRUGS (7)
  1. YAZ [Suspect]
     Active Substance: DROSPIRENONE\ETHINYL ESTRADIOL
     Indication: ACNE
     Dosage: UNK
     Dates: start: 200701, end: 200810
  2. YAZ [Suspect]
     Active Substance: DROSPIRENONE\ETHINYL ESTRADIOL
     Indication: CONTRACEPTION
  3. YASMIN [Suspect]
     Active Substance: DROSPIRENONE\ETHINYL ESTRADIOL
     Indication: PREMENSTRUAL SYNDROME
     Dosage: UNK
     Dates: start: 200701, end: 200810
  4. MUCINEX [Concomitant]
     Active Substance: GUAIFENESIN
  5. ORTHO CYCLEN [Concomitant]
     Active Substance: ETHINYL ESTRADIOL\NORGESTIMATE
  6. YASMIN [Suspect]
     Active Substance: DROSPIRENONE\ETHINYL ESTRADIOL
     Indication: ACNE
     Dosage: UNK
     Dates: start: 200909, end: 200910
  7. YAZ [Suspect]
     Active Substance: DROSPIRENONE\ETHINYL ESTRADIOL
     Indication: PREMENSTRUAL SYNDROME
     Dosage: UNK
     Dates: start: 200909, end: 200910

REACTIONS (7)
  - Cardiac disorder [None]
  - General physical health deterioration [Recovered/Resolved]
  - Pain [Recovered/Resolved]
  - Abdominal pain [None]
  - Pulmonary embolism [Recovered/Resolved]
  - Deep vein thrombosis [None]
  - Injury [Recovered/Resolved]

NARRATIVE: CASE EVENT DATE: 200910
